FAERS Safety Report 4319872-4 (Version None)
Quarter: 2004Q1

REPORT INFORMATION
  Report Type: 
  Country: None (occurrence: None)
  Receive Date: 20040319
  Receipt Date: 20040303
  Transmission Date: 20041129
  Serious: Yes (Life-Threatening)
  Sender: FDA-Public Use
  Company Number: PHBS2004JP03040

PATIENT
  Age: 22 Year
  Sex: Female

DRUGS (5)
  1. VOLTAREN [Suspect]
     Dosage: 475 MG, ONCE/SINGLE
     Route: 048
  2. IBUPROFEN [Suspect]
     Dosage: 800 MG, ONCE/SINGLE
     Route: 048
  3. LOXOPROFEN [Concomitant]
     Dosage: 720 MG, ONCE/SINGLE
     Route: 048
  4. CLARITHROMYCIN [Suspect]
     Dosage: 800 MG, ONCE/SINGLE
     Route: 048
  5. TETUCUR [Concomitant]
     Dosage: 28 DF, ONCE/SINGLE
     Route: 048

REACTIONS (9)
  - ALANINE AMINOTRANSFERASE INCREASED [None]
  - ALCOHOL USE [None]
  - ASPARTATE AMINOTRANSFERASE INCREASED [None]
  - BLOOD BILIRUBIN INCREASED [None]
  - DRUG LEVEL ABOVE THERAPEUTIC [None]
  - DRUG LEVEL INCREASED [None]
  - INTENTIONAL OVERDOSE [None]
  - LIVER DISORDER [None]
  - SUICIDE ATTEMPT [None]
